FAERS Safety Report 5772974-8 (Version None)
Quarter: 2008Q2

REPORT INFORMATION
  Report Type: 
  Country: None (occurrence: None)
  Receive Date: 20080611
  Receipt Date: 20080528
  Transmission Date: 20081010
  Serious: Yes (Death, Hospitalization, Other)
  Sender: FDA-Public Use
  Company Number: 2008US001507

PATIENT
  Age: 75 Year
  Sex: Female

DRUGS (4)
  1. PROGRAF [Suspect]
     Indication: RENAL TRANSPLANT
  2. TELITHROMYCIN (TELITHROMYCIN) [Suspect]
     Indication: DRUG USE FOR UNKNOWN INDICATION
  3. MYCOPHENOLIC ACID [Concomitant]
  4. PREDNISOLONE ACETATE [Concomitant]

REACTIONS (16)
  - ATRIAL FIBRILLATION [None]
  - BIOPSY SKIN ABNORMAL [None]
  - CELLULITIS [None]
  - COMPLICATIONS OF TRANSPLANTED KIDNEY [None]
  - CRYPTOCOCCAL CUTANEOUS INFECTION [None]
  - DISSEMINATED CRYPTOCOCCOSIS [None]
  - DRUG INTERACTION [None]
  - DRUG TOXICITY [None]
  - FUNGAEMIA [None]
  - HAEMODIALYSIS [None]
  - HYPERKALAEMIA [None]
  - MENINGITIS CRYPTOCOCCAL [None]
  - MULTI-ORGAN FAILURE [None]
  - MULTIPLE-DRUG RESISTANCE [None]
  - MYCOBACTERIUM CHELONEI INFECTION [None]
  - RENAL FAILURE ACUTE [None]
